FAERS Safety Report 6144848-4 (Version None)
Quarter: 2009Q2

REPORT INFORMATION
  Report Type: 
  Country: None (occurrence: None)
  Receive Date: 20090406
  Receipt Date: 20090330
  Transmission Date: 20091009
  Serious: Yes (Hospitalization, Other)
  Sender: FDA-Public Use
  Company Number: US-BAYER-200834532NA

PATIENT
  Age: 55 Year
  Sex: Female

DRUGS (13)
  1. CAMPATH [Suspect]
     Indication: T-CELL PROLYMPHOCYTIC LEUKAEMIA
     Route: 042
     Dates: start: 20081101, end: 20090115
  2. CAMPATH [Suspect]
     Route: 042
     Dates: start: 20081015
  3. CAMPATH [Suspect]
     Dosage: TOTAL DAILY DOSE: 10 MG
     Route: 058
     Dates: start: 20080922, end: 20081015
  4. CAMPATH [Suspect]
     Dosage: TOTAL DAILY DOSE: 3 MG
     Route: 058
     Dates: start: 20080915, end: 20080921
  5. FLUDARA [Suspect]
     Indication: T-CELL PROLYMPHOCYTIC LEUKAEMIA
     Dates: start: 20081015
  6. BENADRYL [Concomitant]
     Indication: PREMEDICATION
  7. TYLENOL [Concomitant]
     Indication: PREMEDICATION
  8. ANTI-NAUSEA (NAME UNKNOWN) [Concomitant]
     Indication: PREMEDICATION
  9. CYTOXAN [Concomitant]
     Dates: start: 20081015
  10. DAUNOMYCIN [Concomitant]
     Dates: start: 20081015
  11. DAPSONE [Concomitant]
     Indication: INFECTION PROPHYLAXIS
     Dates: start: 20080911
  12. VALCYTE [Concomitant]
     Indication: INFECTION PROPHYLAXIS
     Dates: start: 20080911
  13. STEROIDS [Concomitant]
     Dosage: TAPER DOSE

REACTIONS (8)
  - ADVERSE EVENT [None]
  - CHILLS [None]
  - COLD SWEAT [None]
  - DIZZINESS [None]
  - HAEMATOCHEZIA [None]
  - LOSS OF CONSCIOUSNESS [None]
  - NAUSEA [None]
  - PNEUMONIA LEGIONELLA [None]
